FAERS Safety Report 23409929 (Version 1)
Quarter: 2024Q1

REPORT INFORMATION
  Report Type: Spontaneous
  Country: CN (occurrence: CN)
  Receive Date: 20240117
  Receipt Date: 20240117
  Transmission Date: 20240409
  Serious: Yes (Hospitalization)
  Sender: FDA-Public Use
  Company Number: CN-JNJFOC-20240126868

PATIENT
  Age: 54 Year
  Sex: Male

DRUGS (1)
  1. UPTRAVI [Suspect]
     Active Substance: SELEXIPAG
     Indication: Pulmonary hypertension
     Route: 048
     Dates: start: 20171009, end: 20231129

REACTIONS (3)
  - Platelet count decreased [Recovering/Resolving]
  - White blood cell count decreased [Recovering/Resolving]
  - Cyanosis [Unknown]

NARRATIVE: CASE EVENT DATE: 20231129
